FAERS Safety Report 11058583 (Version 1)
Quarter: 2015Q2

REPORT INFORMATION
  Report Type: Spontaneous
  Country: US (occurrence: None)
  Receive Date: 20150422
  Receipt Date: 20150422
  Transmission Date: 20150821
  Serious: Yes (Life-Threatening, Hospitalization, Other)
  Sender: FDA-Public Use
  Company Number: None

PATIENT
  Age: 38 Year
  Sex: Female
  Weight: 112.95 kg

DRUGS (5)
  1. NABUMETONE 750 MG 0591-3671-05/WATSON [Suspect]
     Active Substance: NABUMETONE
     Indication: ARTHRALGIA
     Dosage: 1_2 AS NEEDED FOR PAIN
     Route: 048
     Dates: start: 20150419, end: 20150419
  2. HUMALOG 75/25 [Concomitant]
  3. VITAMIN D [Concomitant]
     Active Substance: CHOLECALCIFEROL
  4. LISINOPRIL. [Concomitant]
     Active Substance: LISINOPRIL
  5. SYNTHROID [Concomitant]
     Active Substance: LEVOTHYROXINE SODIUM

REACTIONS (15)
  - Local swelling [None]
  - Rash [None]
  - Pain [None]
  - Pharyngeal oedema [None]
  - Pruritus [None]
  - Impaired work ability [None]
  - Burning sensation [None]
  - Feeling hot [None]
  - Dyspnoea [None]
  - Diabetic complication [None]
  - Swelling face [None]
  - Swollen tongue [None]
  - Ear swelling [None]
  - Lip swelling [None]
  - Urticaria [None]

NARRATIVE: CASE EVENT DATE: 20150419
